FAERS Safety Report 6370648-6 (Version None)
Quarter: 2009Q3

REPORT INFORMATION
  Report Type: 
  Country: None (occurrence: None)
  Receive Date: 20090921
  Receipt Date: 20090921
  Transmission Date: 20100115
  Serious: Yes (Death, Hospitalization)
  Sender: FDA-Public Use
  Company Number: None

PATIENT
  Sex: Female
  Weight: 63 kg

DRUGS (3)
  1. CARBOPLATIN [Suspect]
     Dosage: 177.6 MG
  2. CETUXIMAB (ERIBTUX) [Suspect]
     Dosage: 425 MG
  3. TAXOL [Suspect]
     Dosage: 76.5 MG

REACTIONS (1)
  - FAILURE TO THRIVE [None]
